FAERS Safety Report 24704049 (Version 1)
Quarter: 2024Q4

REPORT INFORMATION
  Report Type: Spontaneous
  Country: US (occurrence: US)
  Receive Date: 20241206
  Receipt Date: 20241206
  Transmission Date: 20250115
  Serious: No
  Sender: TENSHI KAIZEN PRIVATE LIMITED
  Company Number: US-TENSHI KAIZEN PRIVATE LIMITED-2024TK000113

PATIENT
  Sex: Female

DRUGS (2)
  1. LORATADINE [Suspect]
     Active Substance: LORATADINE
     Indication: Asthma
     Dosage: UNK
     Route: 065
  2. LORATADINE [Suspect]
     Active Substance: LORATADINE
     Dosage: UNK, ALAVERT MINT
     Route: 048

REACTIONS (4)
  - Nasopharyngitis [Unknown]
  - Therapeutic product effect decreased [Unknown]
  - Product taste abnormal [Unknown]
  - Product use in unapproved indication [Unknown]
